FAERS Safety Report 23913107 (Version 1)
Quarter: 2024Q2

REPORT INFORMATION
  Report Type: Spontaneous
  Country: US (occurrence: US)
  Receive Date: 20240529
  Receipt Date: 20240529
  Transmission Date: 20240717
  Serious: Yes (Other)
  Sender: FDA-Public Use
  Company Number: US-MLMSERVICE-20240510-PI052533-00140-2

PATIENT

DRUGS (7)
  1. BLEOMYCIN SULFATE [Suspect]
     Active Substance: BLEOMYCIN SULFATE
     Indication: Germ cell neoplasm
     Dosage: 15 U/M2 DAYS 1, 8, 15, 3 CYCLES (21-DAY CYCLE)
     Route: 065
  2. BLEOMYCIN SULFATE [Suspect]
     Active Substance: BLEOMYCIN SULFATE
     Indication: Teratoma
  3. CISPLATIN [Suspect]
     Active Substance: CISPLATIN
     Indication: Germ cell neoplasm
     Dosage: 100 MILLIGRAM/SQ. METER (1 CYCLICAL (20 MG/M2 IV DAYS 1-5, 3 CYCLES (21-DAY CYCLE))
     Route: 042
  4. CISPLATIN [Suspect]
     Active Substance: CISPLATIN
     Indication: Teratoma
  5. ETOPOSIDE [Suspect]
     Active Substance: ETOPOSIDE
     Indication: Teratoma
     Dosage: 500 MILLIGRAM/SQ. METER (100 MG/M2 IV DAYS 1?5 , 3 CYCLES (21-DAY CYCLE))
     Route: 042
  6. ETOPOSIDE [Suspect]
     Active Substance: ETOPOSIDE
     Indication: Metastases to lung
     Dosage: 1050 MILLIGRAM/SQ. METER, 1 CYCLICAL (50MG/M2 PO DAYS 1?21)
     Route: 048
  7. ETOPOSIDE [Suspect]
     Active Substance: ETOPOSIDE
     Indication: Germ cell neoplasm

REACTIONS (3)
  - KMT2A gene mutation [Recovering/Resolving]
  - Leukaemia [Recovering/Resolving]
  - B-cell type acute leukaemia [Recovering/Resolving]
